APPROVED DRUG PRODUCT: IBUPROFEN AND DIPHENHYDRAMINE HYDROCHLORIDE
Active Ingredient: DIPHENHYDRAMINE HYDROCHLORIDE; IBUPROFEN
Strength: 25MG;EQ 200MG FREE ACID AND POTASSIUM SALT
Dosage Form/Route: CAPSULE;ORAL
Application: A200888 | Product #001
Applicant: ONESOURCE SPECIALTY PTE LTD
Approved: Mar 5, 2012 | RLD: No | RS: No | Type: OTC